FAERS Safety Report 11030199 (Version 1)
Quarter: 2015Q2

REPORT INFORMATION
  Report Type: Spontaneous
  Country: NZ (occurrence: NZ)
  Receive Date: 20150415
  Receipt Date: 20150415
  Transmission Date: 20150821
  Serious: Yes (Other)
  Sender: FDA-Public Use
  Company Number: NZ-AMGEN-AUSSP2015034970

PATIENT
  Age: 59 Year
  Sex: Female
  Weight: 70 kg

DRUGS (9)
  1. ZOLEDRONIC ACID. [Concomitant]
     Active Substance: ZOLEDRONIC ACID
     Dosage: UNK, Q4WK
     Dates: start: 20140224
  2. OMEPRAZOLE. [Concomitant]
     Active Substance: OMEPRAZOLE
     Dosage: UNK
  3. CAPECITABINE. [Concomitant]
     Active Substance: CAPECITABINE
     Dosage: 1500 MG, QD
     Dates: start: 20120621
  4. DOXORUBICIN [Concomitant]
     Active Substance: DOXORUBICIN
     Dosage: UNK, Q3WK
     Dates: start: 20140819
  5. ZOPICLONE [Concomitant]
     Active Substance: ZOPICLONE
     Dosage: UNK
  6. PACLITAXEL. [Concomitant]
     Active Substance: PACLITAXEL
     Dosage: UNK
     Dates: start: 20140325
  7. VITAMIN D                          /00107901/ [Concomitant]
     Active Substance: ERGOCALCIFEROL
  8. XGEVA [Suspect]
     Active Substance: DENOSUMAB
     Indication: METASTASES TO BONE
     Dosage: UNK, Q4WK
     Route: 058
     Dates: start: 201310
  9. VINORELBINE [Concomitant]
     Active Substance: VINORELBINE\VINORELBINE TARTRATE
     Dosage: UNK

REACTIONS (10)
  - Nerve root compression [Unknown]
  - Metastases to bone [Unknown]
  - Myalgia [Unknown]
  - Marrow hyperplasia [Unknown]
  - Weight decreased [Unknown]
  - Influenza like illness [Unknown]
  - Liver function test abnormal [Recovering/Resolving]
  - Disease progression [Unknown]
  - Pulmonary mass [Unknown]
  - Decreased appetite [Unknown]

NARRATIVE: CASE EVENT DATE: 20131127
